FAERS Safety Report 6700121-4 (Version None)
Quarter: 2010Q2

REPORT INFORMATION
  Report Type: 
  Country: None (occurrence: None)
  Receive Date: 20100428
  Receipt Date: 20100423
  Transmission Date: 20101027
  Serious: Yes (Other)
  Sender: FDA-Public Use
  Company Number: GB-ASTRAZENECA-2010SE18227

PATIENT
  Age: 69 Year
  Sex: Male

DRUGS (14)
  1. SYMBICORT [Suspect]
     Indication: CHRONIC OBSTRUCTIVE PULMONARY DISEASE
     Route: 055
     Dates: start: 20100318, end: 20100322
  2. LOSEC I.V. [Concomitant]
     Route: 048
     Dates: start: 20050101
  3. ALLOPURINOL [Concomitant]
     Route: 048
     Dates: start: 20030101
  4. AMLODIPINE [Concomitant]
     Route: 048
     Dates: start: 20080101
  5. ASPIRIN [Concomitant]
     Route: 048
     Dates: start: 20000101
  6. ATORVASTATIN [Concomitant]
     Route: 048
     Dates: start: 20040101
  7. FUROSEMIDE [Concomitant]
     Route: 048
     Dates: start: 20060101
  8. GLICLAZIDE [Concomitant]
     Route: 048
     Dates: start: 20070101
  9. IMIDAPRIL [Concomitant]
     Route: 048
     Dates: start: 20010101
  10. METFORMIN [Concomitant]
     Route: 048
     Dates: start: 20050101
  11. PIOGLITAZONE [Concomitant]
     Route: 048
     Dates: start: 20070101
  12. TESTOSTERONE [Concomitant]
     Route: 048
     Dates: start: 20090101, end: 20100203
  13. VALSARTAN [Concomitant]
     Route: 048
     Dates: start: 20060101
  14. VENTOLIN [Concomitant]
     Route: 055
     Dates: start: 20100301

REACTIONS (3)
  - LIP SWELLING [None]
  - ORAL PAIN [None]
  - PARAESTHESIA ORAL [None]
